FAERS Safety Report 6370896-5 (Version None)
Quarter: 2009Q3

REPORT INFORMATION
  Report Type: 
  Country: None (occurrence: None)
  Receive Date: 20090923
  Receipt Date: 20070530
  Transmission Date: 20100115
  Serious: Yes (Other)
  Sender: FDA-Public Use
  Company Number: US-ASTRAZENECA-2006UW23615

PATIENT
  Age: 13731 Day
  Sex: Female
  Weight: 111.1 kg

DRUGS (16)
  1. SEROQUEL [Suspect]
     Indication: BIPOLAR I DISORDER
     Dosage: 300-500 MG DAILY
     Route: 048
     Dates: start: 20030811
  2. SEROQUEL [Suspect]
     Indication: BIPOLAR DISORDER
     Dosage: 300-500 MG DAILY
     Route: 048
     Dates: start: 20030811
  3. ABILIFY [Concomitant]
  4. CLOZARIL [Concomitant]
  5. GEODON [Concomitant]
  6. HALDOL [Concomitant]
  7. RISPERDAL [Concomitant]
  8. THORAZINE [Concomitant]
  9. LITHIUM [Concomitant]
  10. DEPAKOTE [Concomitant]
  11. XANAX [Concomitant]
     Route: 048
     Dates: start: 20021029
  12. PREMARIN [Concomitant]
     Route: 048
     Dates: start: 20031016
  13. ALLOPURINOL [Concomitant]
     Route: 048
  14. WELLBUTRIN [Concomitant]
     Dates: start: 20021029
  15. TRIHEXYPHENIDYL HCL [Concomitant]
     Dates: start: 20021029
  16. TRAZODONE [Concomitant]
     Dates: start: 20021029

REACTIONS (3)
  - DIABETES MELLITUS [None]
  - TARDIVE DYSKINESIA [None]
  - TYPE 2 DIABETES MELLITUS [None]
